FAERS Safety Report 5263651-0 (Version None)
Quarter: 2007Q1

REPORT INFORMATION
  Report Type: 
  Country: None (occurrence: None)
  Receive Date: 20070313
  Receipt Date: 20070301
  Transmission Date: 20070707
  Serious: Yes (Hospitalization)
  Sender: FDA-Public Use
  Company Number: US-AVENTIS-200710996EU

PATIENT
  Age: 86 Year
  Sex: Male
  Weight: 101 kg

DRUGS (4)
  1. LOVENOX [Suspect]
     Route: 058
     Dates: end: 20070201
  2. COUMADIN [Suspect]
     Route: 048
     Dates: end: 20070201
  3. HEPARIN [Concomitant]
  4. EPTIFIBATIDE [Concomitant]

REACTIONS (1)
  - HOSPITALISATION [None]
